FAERS Safety Report 24812144 (Version 1)
Quarter: 2025Q1

REPORT INFORMATION
  Report Type: Spontaneous
  Country: US (occurrence: None)
  Receive Date: 20250106
  Receipt Date: 20250106
  Transmission Date: 20250409
  Serious: No
  Sender: FDA-CTU
  Company Number: None

PATIENT
  Age: 69 Year
  Sex: Male
  Weight: 91.35 kg

DRUGS (1)
  1. LEQEMBI [Suspect]
     Active Substance: LECANEMAB-IRMB
     Dates: start: 20241125, end: 20241223

REACTIONS (3)
  - Disorientation [None]
  - Hypoaesthesia oral [None]
  - Muscle spasms [None]

NARRATIVE: CASE EVENT DATE: 20250106
